FAERS Safety Report 5796918-8 (Version None)
Quarter: 2008Q2

REPORT INFORMATION
  Report Type: 
  Country: None (occurrence: None)
  Receive Date: 20080627
  Receipt Date: 20080612
  Transmission Date: 20081010
  Serious: Yes (Life-Threatening, Hospitalization)
  Sender: FDA-Public Use
  Company Number: 6043606

PATIENT
  Age: 96 Year
  Sex: Female

DRUGS (8)
  1. LODOZ (TABLET) (HYDROCHLOROTHIAZIDE, BISOPROLOL FUMARATE) [Suspect]
     Indication: HYPERTENSION
     Dosage: 10 MG (10 MG, 1 D) ORAL
     Route: 048
     Dates: start: 20070501, end: 20080424
  2. INDAPAMIDE [Suspect]
     Indication: HYPERTENSION
     Dosage: 1.5 MG (1.5 MG, 1 D) ORAL
     Route: 048
     Dates: start: 20070501, end: 20080424
  3. BUMETANIDE [Suspect]
     Indication: HYPERTENSION
     Dosage: 5 MG (5 MG, 1 D) ORAL
     Route: 048
     Dates: start: 20070701, end: 20080424
  4. NEURONTIN (400 MG, CAPSULE) (GABAPENTIN) [Concomitant]
  5. DIFFU K (CAPSULE) (POTASSIUM CHLORIDE) [Concomitant]
  6. PLAVIX [Concomitant]
  7. ALLOPURINOL TAB [Concomitant]
  8. NORMISON (20 MG, TABLET) (TEMAZEPAM) [Concomitant]

REACTIONS (15)
  - ACIDOSIS [None]
  - ATRIOVENTRICULAR BLOCK COMPLETE [None]
  - BLOOD CREATININE INCREASED [None]
  - BLOOD UREA INCREASED [None]
  - BRADYCARDIA [None]
  - CONFUSIONAL STATE [None]
  - DEHYDRATION [None]
  - HYPOTENSION [None]
  - MALAISE [None]
  - RENAL FAILURE ACUTE [None]
  - SHOCK [None]
  - SOMNOLENCE [None]
  - TACHYCARDIA [None]
  - THIRST [None]
  - UNEVALUABLE EVENT [None]
